FAERS Safety Report 14487364 (Version 1)
Quarter: 2018Q1

REPORT INFORMATION
  Report Type: Spontaneous
  Country: US (occurrence: US)
  Receive Date: 20180205
  Receipt Date: 20180205
  Transmission Date: 20180509
  Serious: Yes (Life-Threatening, Other)
  Sender: FDA-Public Use
  Company Number: US-MYLANLABS-2018M1006446

PATIENT
  Age: 27 Year
  Sex: Female
  Weight: 68 kg

DRUGS (1)
  1. EPINEPHRINE. [Suspect]
     Active Substance: EPINEPHRINE
     Indication: ANAPHYLACTIC REACTION
     Dosage: UNK
     Route: 030
     Dates: start: 20180120, end: 20180120

REACTIONS (6)
  - Product administered at inappropriate site [Unknown]
  - Drug ineffective [Unknown]
  - Pain in extremity [Unknown]
  - Burning sensation [Not Recovered/Not Resolved]
  - Feeling cold [Not Recovered/Not Resolved]
  - Incorrect route of drug administration [Unknown]

NARRATIVE: CASE EVENT DATE: 201801
